FAERS Safety Report 4748032-8 (Version None)
Quarter: 2005Q3

REPORT INFORMATION
  Report Type: 
  Country: None (occurrence: None)
  Receive Date: 20050818
  Receipt Date: 20050418
  Transmission Date: 20060218
  Serious: Yes (Hospitalization)
  Sender: FDA-Public Use
  Company Number: 2005AP02349

PATIENT
  Age: 61 Year
  Sex: Male
  Weight: 51.5 kg

DRUGS (6)
  1. MEROPEN [Suspect]
     Indication: PNEUMONIA
     Route: 041
     Dates: start: 20041212, end: 20041224
  2. THEOLONG [Concomitant]
     Indication: EMPHYSEMA
     Route: 048
     Dates: start: 20040401
  3. MUCODYNE [Concomitant]
     Indication: EMPHYSEMA
     Route: 048
     Dates: start: 20040401
  4. HOKUNALIN TAPE [Concomitant]
     Indication: EMPHYSEMA
     Route: 062
     Dates: start: 20040401
  5. MUCOSOLVAN L [Concomitant]
     Indication: EMPHYSEMA
     Route: 048
     Dates: start: 20040401
  6. MINOMYCIN [Concomitant]
     Indication: PNEUMONIA
     Route: 041
     Dates: start: 20041225, end: 20041230

REACTIONS (1)
  - ARTHRITIS [None]
